FAERS Safety Report 6679388-7 (Version None)
Quarter: 2010Q2

REPORT INFORMATION
  Report Type: 
  Country: None (occurrence: None)
  Receive Date: 20100413
  Receipt Date: 20100402
  Transmission Date: 20101027
  Serious: Yes (Death)
  Sender: FDA-Public Use
  Company Number: US-ROCHE-684165

PATIENT
  Sex: Male

DRUGS (1)
  1. MYCOPHENOLATE MOFETIL [Suspect]
     Indication: INTERSTITIAL LUNG DISEASE
     Dosage: ADDITIONAL INDICATION: NON-SPECIFIC INTERSTITIAL PNEUMONITIS.
     Route: 065
     Dates: start: 20080101, end: 20100104

REACTIONS (4)
  - PNEUMONIA ASPIRATION [None]
  - PULMONARY EMBOLISM [None]
  - RESPIRATORY ARREST [None]
  - THROMBOSIS [None]
